FAERS Safety Report 17148654 (Version 1)
Quarter: 2019Q4

REPORT INFORMATION
  Report Type: Spontaneous
  Country: SE (occurrence: SE)
  Receive Date: 20191213
  Receipt Date: 20191213
  Transmission Date: 20200122
  Serious: Yes (Hospitalization)
  Sender: FDA-Public Use
  Company Number: SE-TEVA-2019-SE-1150627

PATIENT
  Sex: Male

DRUGS (2)
  1. LERGIGAN (PROMETHAZINE HYDROCHLORIDE) [Suspect]
     Active Substance: PROMETHAZINE HYDROCHLORIDE
     Dosage: 25 ST
     Route: 048
     Dates: start: 20190615, end: 20190615
  2. STESOLID [Suspect]
     Active Substance: DIAZEPAM
     Dosage: 115 MG
     Route: 048
     Dates: start: 20190615, end: 20190615

REACTIONS (4)
  - Intentional overdose [Unknown]
  - Heart rate increased [Unknown]
  - Hyperhidrosis [Unknown]
  - Intentional self-injury [Unknown]

NARRATIVE: CASE EVENT DATE: 201906
